FAERS Safety Report 6262634-1 (Version None)
Quarter: 2009Q3

REPORT INFORMATION
  Report Type: 
  Country: None (occurrence: None)
  Receive Date: 20090709
  Receipt Date: 20090629
  Transmission Date: 20100115
  Serious: Yes (Other)
  Sender: FDA-Public Use
  Company Number: CA-ABBOTT-09P-028-0583644-00

PATIENT
  Sex: Male

DRUGS (6)
  1. LUPRON DEPOT [Suspect]
     Indication: PROSTATE CANCER
     Dates: start: 20060912
  2. CASODEX [Concomitant]
     Indication: DRUG USE FOR UNKNOWN INDICATION
     Dates: start: 20040101
  3. NORVASC [Concomitant]
     Indication: CARDIAC DISORDER
     Dosage: 1/2 TABS DAILY
     Dates: start: 20010101
  4. METOPROLOL [Concomitant]
     Indication: CARDIAC DISORDER
     Dosage: 1/2 TAB DAILY
     Dates: start: 20010101
  5. PERINDOPRIL ERBUMINE [Concomitant]
     Indication: DRUG USE FOR UNKNOWN INDICATION
     Dates: start: 20060101
  6. COUMADIN [Concomitant]
     Indication: DRUG USE FOR UNKNOWN INDICATION
     Dosage: DOSAGE ACCORDING TO BLOOD TEST
     Dates: start: 20080401

REACTIONS (2)
  - BLOOD TEST ABNORMAL [None]
  - HOT FLUSH [None]
